FAERS Safety Report 12281198 (Version 1)
Quarter: 2016Q2

REPORT INFORMATION
  Report Type: Spontaneous
  Country: US (occurrence: None)
  Receive Date: 20160418
  Receipt Date: 20160418
  Transmission Date: 20160815
  Serious: Yes (Disabling)
  Sender: FDA-Public Use
  Company Number: None

PATIENT
  Age: 66 Year
  Sex: Female
  Weight: 62.6 kg

DRUGS (5)
  1. MEGARED [Concomitant]
  2. GYMNEMA [Concomitant]
  3. LISINOPRIL. [Concomitant]
     Active Substance: LISINOPRIL
  4. TRULICITY [Suspect]
     Active Substance: DULAGLUTIDE
     Indication: TYPE 2 DIABETES MELLITUS
     Route: 030
  5. JANUMET [Concomitant]
     Active Substance: METFORMIN HYDROCHLORIDE\SITAGLIPTIN PHOSPHATE

REACTIONS (8)
  - Diarrhoea [None]
  - Dehydration [None]
  - Impaired driving ability [None]
  - Mobility decreased [None]
  - Nausea [None]
  - Abdominal pain [None]
  - Anal incontinence [None]
  - Vomiting [None]

NARRATIVE: CASE EVENT DATE: 20160304
